FAERS Safety Report 20219718 (Version 2)
Quarter: 2021Q4

REPORT INFORMATION
  Report Type: Spontaneous
  Country: JP (occurrence: JP)
  Receive Date: 20211222
  Receipt Date: 20211228
  Transmission Date: 20220303
  Serious: No
  Sender: FDA-Public Use
  Company Number: JP-ELI_LILLY_AND_COMPANY-JP202112006616

PATIENT
  Age: 66 Year
  Sex: Female

DRUGS (1)
  1. HUMALOG [Suspect]
     Active Substance: INSULIN LISPRO
     Indication: Type 2 diabetes mellitus
     Dosage: 30 INTERNATIONAL UNIT, DAILY
     Route: 058

REACTIONS (2)
  - Abdominal distension [Recovered/Resolved]
  - Gastrointestinal hypomotility [Recovered/Resolved]

NARRATIVE: CASE EVENT DATE: 20211213
